FAERS Safety Report 7822309-1 (Version None)
Quarter: 2011Q4

REPORT INFORMATION
  Report Type: 
  Country: None (occurrence: None)
  Receive Date: 20111018
  Receipt Date: 20100831
  Transmission Date: 20120403
  Serious: No
  Sender: FDA-Public Use
  Company Number: US-ASTRAZENECA-2010SE40919

PATIENT
  Sex: Male
  Weight: 124.7 kg

DRUGS (6)
  1. SYMBICORT [Suspect]
     Indication: CHRONIC OBSTRUCTIVE PULMONARY DISEASE
     Route: 055
     Dates: start: 20090101
  2. LANTUS [Concomitant]
  3. GABAPENTIN [Concomitant]
  4. VENTOLIN [Concomitant]
  5. CELEBREX [Concomitant]
  6. SIMVASTATIN [Concomitant]

REACTIONS (2)
  - DYSPNOEA [None]
  - FEELING ABNORMAL [None]
